FAERS Safety Report 6925858-3 (Version None)
Quarter: 2010Q3

REPORT INFORMATION
  Report Type: 
  Country: None (occurrence: None)
  Receive Date: 20100816
  Receipt Date: 20100811
  Transmission Date: 20110219
  Serious: Yes (Death)
  Sender: FDA-Public Use
  Company Number: US-GILEAD-2010-0031003

PATIENT
  Age: 38 Year
  Sex: Female
  Weight: 55.388 kg

DRUGS (10)
  1. LETAIRIS [Suspect]
     Indication: PULMONARY ARTERIAL HYPERTENSION
     Route: 048
     Dates: start: 20090817
  2. REMODULIN [Concomitant]
  3. FUROSEMIDE [Concomitant]
  4. COUMADIN [Concomitant]
  5. SPIRONOLACTONE [Concomitant]
  6. POTASSIUM CHLORIDE [Concomitant]
  7. OMEPRAZOLE [Concomitant]
  8. METHYLPREDNISOLONE ACETATE [Concomitant]
  9. ZOFRAN [Concomitant]
  10. PLO GEL [Concomitant]

REACTIONS (1)
  - DEATH [None]
